FAERS Safety Report 18743022 (Version 1)
Quarter: 2021Q1

REPORT INFORMATION
  Report Type: Spontaneous
  Country: CA (occurrence: CA)
  Receive Date: 20210115
  Receipt Date: 20210115
  Transmission Date: 20210419
  Serious: Yes (Other)
  Sender: FDA-Public Use
  Company Number: CA-TEVA-2021-CA-1866850

PATIENT
  Age: 57 Year
  Sex: Female

DRUGS (2)
  1. ADVAGRAF [Interacting]
     Active Substance: TACROLIMUS
     Indication: LIVER TRANSPLANT
     Route: 065
  2. MYCOPHENOLATE MOFETIL. [Suspect]
     Active Substance: MYCOPHENOLATE MOFETIL
     Indication: LIVER TRANSPLANT
     Route: 065

REACTIONS (3)
  - Drug interaction [Unknown]
  - Pulmonary thrombosis [Unknown]
  - Product use in unapproved indication [Unknown]
